FAERS Safety Report 6361609-1 (Version None)
Quarter: 2009Q3

REPORT INFORMATION
  Report Type: 
  Country: None (occurrence: None)
  Receive Date: 20090918
  Receipt Date: 20090915
  Transmission Date: 20100115
  Serious: Yes (Life-Threatening, Other)
  Sender: FDA-Public Use
  Company Number: PHHY2008BR31656

PATIENT
  Sex: Male
  Weight: 116 kg

DRUGS (5)
  1. SANDOSTATIN LAR [Suspect]
     Indication: PITUITARY TUMOUR
     Dosage: 20 MG, UNK
  2. SANDOSTATIN LAR [Suspect]
     Indication: ACROMEGALY
     Dosage: 30 MG, QMO
     Dates: start: 20040301
  3. SANDOSTATIN LAR [Suspect]
     Dosage: 10 MG, 1 AMPOULE EVERY 10 DAYS
  4. BENICAR [Concomitant]
     Indication: BLOOD PRESSURE INCREASED
     Dosage: 40 MG, QD
     Route: 048
  5. AMLODIPINE [Concomitant]
     Indication: BLOOD PRESSURE INCREASED
     Dosage: 10 MG/DAY
     Route: 048
     Dates: start: 20040101

REACTIONS (4)
  - DYSENTERY [None]
  - PRODUCT QUALITY ISSUE [None]
  - UROGENITAL DISORDER [None]
  - WEIGHT DECREASED [None]
